FAERS Safety Report 6944561-7 (Version None)
Quarter: 2010Q3

REPORT INFORMATION
  Report Type: 
  Country: None (occurrence: None)
  Receive Date: 20100827
  Receipt Date: 20100813
  Transmission Date: 20110219
  Serious: Yes (Hospitalization)
  Sender: FDA-Public Use
  Company Number: US-ELI_LILLY_AND_COMPANY-US201008006030

PATIENT
  Sex: Female

DRUGS (20)
  1. EVISTA [Suspect]
     Dosage: 60 MG, DAILY (1/D)
     Dates: start: 20100201
  2. FORTEO [Suspect]
     Indication: SPINAL FUSION SURGERY
     Dosage: 20 UG, UNK
     Dates: start: 20100101
  3. ASPIRIN [Concomitant]
     Dosage: 1 D/F, UNK
  4. TOLTERODINE [Concomitant]
     Dosage: 1 D/F, DAILY (1/D)
  5. XOPENEX [Concomitant]
     Route: 055
  6. MIRALAX [Concomitant]
  7. SENNA-S /01035001/ [Concomitant]
  8. CALCIUM [Concomitant]
     Dosage: 2 D/F, DAILY (1/D)
  9. TUMS [Concomitant]
     Dosage: 2 D/F, DAILY (1/D)
  10. VITAMIN B-12 [Concomitant]
     Dosage: 1 D/F, UNK
  11. VITAMIN D [Concomitant]
  12. NEXIUM [Concomitant]
     Dosage: 1 D/F, UNK
  13. LORAZEPAM [Concomitant]
  14. CLOTRIMAZOLE [Concomitant]
  15. AMOXICILLIN [Concomitant]
     Indication: PROPHYLAXIS
  16. ADVAIR DISKUS 100/50 [Concomitant]
  17. VENTOLIN                                /SCH/ [Concomitant]
     Dosage: UNK, 3/D
  18. ATROVENT [Concomitant]
     Route: 055
  19. TYLENOL W/ CODEINE NO. 3 [Concomitant]
     Indication: PAIN
     Dosage: UNK, AS NEEDED
  20. CODEINE SULFATE [Concomitant]
     Dosage: 30 MG, AS NEEDED

REACTIONS (5)
  - INJECTION SITE HAEMATOMA [None]
  - OFF LABEL USE [None]
  - PAIN [None]
  - SPINAL FUSION SURGERY [None]
  - URINARY RETENTION [None]
